FAERS Safety Report 8167743-8 (Version None)
Quarter: 2012Q1

REPORT INFORMATION
  Report Type: 
  Country: None (occurrence: None)
  Receive Date: 20120221
  Receipt Date: 20120208
  Transmission Date: 20120608
  Serious: Yes (Disabling)
  Sender: FDA-Public Use
  Company Number: MCA-N-12-005

PATIENT
  Age: 45 Year
  Sex: Female

DRUGS (1)
  1. TERBINAFINE HYDROCHLORIDE [Suspect]
     Indication: ONYCHOMYCOSIS
     Dosage: 250 MG, QD, PO
     Route: 048
     Dates: start: 20080401, end: 20090801

REACTIONS (6)
  - VISION BLURRED [None]
  - BLINDNESS [None]
  - PHOTOPSIA [None]
  - CONDITION AGGRAVATED [None]
  - ONYCHOMYCOSIS [None]
  - DRUG INEFFECTIVE [None]
